FAERS Safety Report 20608820 (Version 1)
Quarter: 2022Q1

REPORT INFORMATION
  Report Type: Spontaneous
  Country: US (occurrence: US)
  Receive Date: 20220317
  Receipt Date: 20220317
  Transmission Date: 20220423
  Serious: Yes (Hospitalization)
  Sender: FDA-Public Use
  Company Number: US-ELI_LILLY_AND_COMPANY-US202203005011

PATIENT
  Age: 72 Year
  Sex: Male
  Weight: 81.4 kg

DRUGS (8)
  1. TRULICITY [Suspect]
     Active Substance: DULAGLUTIDE
     Indication: Type 2 diabetes mellitus
     Dosage: 1.5 MG, WEEKLY (1/W)
     Route: 058
     Dates: start: 2018
  2. INFLUENZA VIRUS VACCINE [Suspect]
     Active Substance: INFLUENZA VIRUS VACCINE
     Indication: Immunisation
     Dosage: UNK UNK, SINGLE
     Route: 030
     Dates: end: 20220221
  3. METFORMIN [Concomitant]
     Active Substance: METFORMIN HYDROCHLORIDE
     Indication: Type 2 diabetes mellitus
     Dosage: 850 MG, BID
     Route: 048
     Dates: start: 2005
  4. ATORVASTATIN [Concomitant]
     Active Substance: ATORVASTATIN
     Indication: Hypercholesterolaemia
     Dosage: 40 MG, DAILY
     Route: 048
     Dates: start: 2015
  5. PIOGLITAZONE [Concomitant]
     Active Substance: PIOGLITAZONE
     Indication: Type 2 diabetes mellitus
     Dosage: 30 MG, DAILY
     Route: 048
     Dates: start: 2015
  6. LISINOPRIL [Concomitant]
     Active Substance: LISINOPRIL
     Indication: Hypertension
     Dosage: 20 MG, DAILY
     Route: 048
     Dates: start: 2015
  7. PROTONIX [Concomitant]
     Active Substance: PANTOPRAZOLE SODIUM
     Indication: Product used for unknown indication
     Dosage: 40 MG, BID
     Route: 048
  8. FERROUS SULFATE [Concomitant]
     Active Substance: FERROUS SULFATE
     Indication: Anaemia
     Dosage: 325 MG, DAILY
     Route: 048
     Dates: start: 20220218

REACTIONS (4)
  - Upper gastrointestinal haemorrhage [Recovering/Resolving]
  - Duodenal ulcer [Unknown]
  - Iron deficiency anaemia [Unknown]
  - Lipase increased [Unknown]

NARRATIVE: CASE EVENT DATE: 20220216
